FAERS Safety Report 7558140-4 (Version None)
Quarter: 2011Q2

REPORT INFORMATION
  Report Type: 
  Country: None (occurrence: None)
  Receive Date: 20110620
  Receipt Date: 20110606
  Transmission Date: 20111010
  Serious: Yes (Hospitalization)
  Sender: FDA-Public Use
  Company Number: IT-KINGPHARMUSA00001-K201100687

PATIENT
  Age: 68 Year
  Sex: Female

DRUGS (8)
  1. LASIX [Suspect]
     Indication: ESSENTIAL HYPERTENSION
     Dosage: 1 DF, QD
     Route: 048
     Dates: start: 20110403, end: 20110503
  2. BISOPROLOLO SANDOZ [Concomitant]
  3. LOSARTAN POTASSIUM [Suspect]
     Indication: ESSENTIAL HYPERTENSION
     Dosage: 50 MG, UNK
     Route: 048
     Dates: start: 20110403, end: 20110503
  4. CORDARONE [Concomitant]
  5. ASPIRIN [Concomitant]
  6. LANSOPRAZOLE [Suspect]
  7. ALTACE [Suspect]
     Indication: CARDIAC FAILURE
     Dosage: 5 MG, QD
     Route: 048
     Dates: start: 20110403, end: 20110503
  8. SIMVASTATINA SANDOZ [Concomitant]

REACTIONS (3)
  - ATRIAL FIBRILLATION [None]
  - CARDIAC VALVE DISEASE [None]
  - PULMONARY OEDEMA [None]
